FAERS Safety Report 18383948 (Version 1)
Quarter: 2020Q4

REPORT INFORMATION
  Report Type: Spontaneous
  Country: NO (occurrence: NO)
  Receive Date: 20201014
  Receipt Date: 20201014
  Transmission Date: 20210114
  Serious: Yes (Hospitalization, Other)
  Sender: FDA-Public Use
  Company Number: NO-JNJFOC-20201019853

PATIENT
  Sex: Female

DRUGS (7)
  1. NORSPAN [Suspect]
     Active Substance: BUPRENORPHINE
     Dosage: 20 MCG, Q1H (USED IN THE LAST TRIMESTER OF THE PREGNANCY)
     Route: 064
  2. TRAMADOL HYDROCHLORIDE. [Concomitant]
     Active Substance: TRAMADOL HYDROCHLORIDE
     Dosage: 20 MG, BID PRN
     Route: 064
  3. PARACET                            /00020001/ [Concomitant]
     Active Substance: ACETAMINOPHEN
     Dosage: UNK, PRN
     Route: 064
  4. DUROGESIC [Suspect]
     Active Substance: FENTANYL
     Indication: PRODUCT USED FOR UNKNOWN INDICATION
     Dosage: 25 MCG, Q1H (USED IN THE LAST TRIMESTER OF THE PREGNANCY)
     Route: 064
  5. GASTROGRAFIN [Concomitant]
     Active Substance: DIATRIZOATE MEGLUMINE\DIATRIZOATE SODIUM
     Dosage: UNK, WEEKLY (UP TO MAXIMUM 5 PER WEEK)
     Route: 064
  6. NORSPAN [Suspect]
     Active Substance: BUPRENORPHINE
     Indication: PRODUCT USED FOR UNKNOWN INDICATION
     Dosage: 15 MCG, Q1H (USED IN THE FIRST AND THE SECOUND TRIMESTER OF THE PREGNANCY)
     Route: 064
  7. NORSPAN [Suspect]
     Active Substance: BUPRENORPHINE
     Dosage: 30 MCG, Q1H (USED IN THE LAST TRIMESTER OF THE PREGNANCY)
     Route: 064

REACTIONS (1)
  - Exposure during pregnancy [Unknown]
